FAERS Safety Report 5662811-4 (Version None)
Quarter: 2008Q1

REPORT INFORMATION
  Report Type: 
  Country: None (occurrence: None)
  Receive Date: 20080311
  Receipt Date: 20080311
  Transmission Date: 20080703
  Serious: Yes (Disabling)
  Sender: FDA-Public Use
  Company Number: None

PATIENT
  Sex: Male
  Weight: 90.7194 kg

DRUGS (1)
  1. IMITREX [Suspect]
     Indication: MIGRAINE
     Dosage: 50 MG. AS NEEDED
     Dates: end: 20080122

REACTIONS (2)
  - BLINDNESS UNILATERAL [None]
  - RETINAL ARTERY OCCLUSION [None]
